FAERS Safety Report 4545294-7 (Version None)
Quarter: 2005Q1

REPORT INFORMATION
  Report Type: 
  Country: None (occurrence: None)
  Receive Date: 20050103
  Receipt Date: 20041221
  Transmission Date: 20050727
  Serious: Yes (Death, Hospitalization)
  Sender: FDA-Public Use
  Company Number: HQWYE490717NOV04

PATIENT
  Age: 82 Year
  Sex: Female

DRUGS (4)
  1. RHEUMATREX [Suspect]
     Indication: RHEUMATOID ARTHRITIS
     Dosage: SEE IMAGE
     Route: 048
     Dates: start: 20041116
  2. BONALON (ALENDRONATE SODIUM) [Suspect]
     Route: 048
  3. MINOCYCLINE HCL [Suspect]
     Indication: RHEUMATOID ARTHRITIS
     Dosage: 200 MG 1X PER 1 DAY
     Route: 048
     Dates: start: 20030101
  4. VOLTAREN [Concomitant]

REACTIONS (7)
  - BONE MARROW DEPRESSION [None]
  - FUNGAL INFECTION [None]
  - PLEURAL EFFUSION [None]
  - PNEUMONIA [None]
  - SEPTIC SHOCK [None]
  - STAPHYLOCOCCAL INFECTION [None]
  - STOMATITIS [None]
